FAERS Safety Report 9294377 (Version 4)
Quarter: 2013Q3

REPORT INFORMATION
  Report Type: Spontaneous
  Country: US (occurrence: US)
  Receive Date: 20130517
  Receipt Date: 20130903
  Transmission Date: 20140515
  Serious: No
  Sender: FDA-Public Use
  Company Number: US-009507513-1305USA004638

PATIENT
  Sex: Female
  Weight: 77.98 kg

DRUGS (3)
  1. IMPLANON [Suspect]
     Indication: CONTRACEPTION
     Dosage: 68 MG/ONE ROD EVERY THREE YEARS
     Route: 059
     Dates: start: 20121023
  2. VITAMINS (UNSPECIFIED) [Concomitant]
  3. REGLAN [Concomitant]

REACTIONS (5)
  - Device difficult to use [Not Recovered/Not Resolved]
  - Unintended pregnancy [Unknown]
  - Twin pregnancy [Unknown]
  - Medical device complication [Not Recovered/Not Resolved]
  - Drug dose omission [Unknown]
